FAERS Safety Report 12590060 (Version 1)
Quarter: 2016Q3

REPORT INFORMATION
  Report Type: Spontaneous
  Country: GB (occurrence: GB)
  Receive Date: 20160725
  Receipt Date: 20160725
  Transmission Date: 20161109
  Serious: Yes (Disabling, Other)
  Sender: FDA-Public Use
  Company Number: GB-MYLANLABS-2016M1029658

PATIENT

DRUGS (3)
  1. LEVETIRACETAM. [Concomitant]
     Active Substance: LEVETIRACETAM
     Dosage: 750 MG, TID
  2. LAMOTRIGINE. [Suspect]
     Active Substance: LAMOTRIGINE
     Indication: EPILEPSY
     Dosage: 150 MG, BID (INCREASED UP TO 150MG TWICE A DAY)
     Route: 048
     Dates: start: 201503
  3. CARBAMAZEPINE. [Concomitant]
     Active Substance: CARBAMAZEPINE
     Dosage: 400 MG, TID

REACTIONS (10)
  - Postictal psychosis [Recovering/Resolving]
  - Hyperthermia [Not Recovered/Not Resolved]
  - Fear [Recovering/Resolving]
  - Emotional distress [Recovering/Resolving]
  - Agitation [Recovering/Resolving]
  - Hyperhidrosis [Not Recovered/Not Resolved]
  - Insomnia [Recovering/Resolving]
  - Delusion [Recovering/Resolving]
  - Paranoia [Recovering/Resolving]
  - Hallucination, auditory [Recovering/Resolving]

NARRATIVE: CASE EVENT DATE: 201504
